FAERS Safety Report 16704849 (Version 2)
Quarter: 2019Q4

REPORT INFORMATION
  Report Type: Report from Study
  Country: CA (occurrence: CA)
  Receive Date: 20190814
  Receipt Date: 20191127
  Transmission Date: 20200122
  Serious: Yes (Other)
  Sender: FDA-Public Use
  Company Number: PHHY2019CA189033

PATIENT
  Age: 68 Year
  Sex: Male

DRUGS (4)
  1. ENTRESTO [Suspect]
     Active Substance: SACUBITRIL\VALSARTAN
     Dosage: 2 DF, UNK (49 MG SACUBITRIL/VALSARTAN 51 MG)
     Route: 065
     Dates: start: 20190603
  2. ENTRESTO [Suspect]
     Active Substance: SACUBITRIL\VALSARTAN
     Indication: CARDIAC FAILURE
     Dosage: 2 DF, UNK (24 MG SACUBITRIL/VALSARTAN 26 MG)
     Route: 065
     Dates: start: 20161129, end: 20170302
  3. ENTRESTO [Suspect]
     Active Substance: SACUBITRIL\VALSARTAN
     Dosage: 2 DF, UNK (97 MG SACUBITRIL/VALSARTAN 103 MG)
     Route: 065
     Dates: start: 20190503, end: 20190603
  4. ENTRESTO [Suspect]
     Active Substance: SACUBITRIL\VALSARTAN
     Dosage: 2 DF, UNK (49 MG SACUBITRIL/VALSARTAN 51 MG)
     Route: 065
     Dates: start: 20170303, end: 20190502

REACTIONS (2)
  - Syncope [Recovered/Resolved]
  - Dizziness [Recovering/Resolving]

NARRATIVE: CASE EVENT DATE: 20190603
